FAERS Safety Report 4611193-5 (Version None)
Quarter: 2005Q1

REPORT INFORMATION
  Report Type: 
  Country: None (occurrence: None)
  Receive Date: 20050317
  Receipt Date: 20050304
  Transmission Date: 20050727
  Serious: Yes (Hospitalization, Disabling)
  Sender: FDA-Public Use
  Company Number: CA-MERCK-0503CAN00041

PATIENT
  Age: 59 Year
  Sex: Male

DRUGS (6)
  1. PROSCAR [Suspect]
     Indication: BENIGN PROSTATIC HYPERPLASIA
     Route: 048
     Dates: start: 20040526
  2. PROSCAR [Suspect]
     Route: 048
  3. LITHIUM CARBONATE [Concomitant]
     Indication: DEPRESSION
     Route: 065
     Dates: start: 20000101, end: 20041109
  4. BUPROPION HYDROCHLORIDE [Concomitant]
     Indication: DEPRESSION
     Route: 065
     Dates: start: 20020101, end: 20041109
  5. LEVOTHYROXINE SODIUM [Concomitant]
     Indication: HYPOTHYROIDISM
     Route: 065
     Dates: start: 19970101
  6. TERAZOSIN HYDROCHLORIDE [Concomitant]
     Indication: BENIGN PROSTATIC HYPERPLASIA
     Route: 065
     Dates: start: 20040706, end: 20050304

REACTIONS (4)
  - ACUTE CORONARY SYNDROME [None]
  - DEMYELINATION [None]
  - RADICULOPATHY [None]
  - RETROGRADE EJACULATION [None]
